FAERS Safety Report 8199747-3 (Version None)
Quarter: 2012Q1

REPORT INFORMATION
  Report Type: 
  Country: None (occurrence: None)
  Receive Date: 20120311
  Receipt Date: 20120305
  Transmission Date: 20120608
  Serious: Yes (Death, Hospitalization)
  Sender: FDA-Public Use
  Company Number: PHFR2012GB000759

PATIENT
  Sex: Female
  Weight: 119.2 kg

DRUGS (4)
  1. BUMETANIDE [Concomitant]
     Indication: CARDIAC FAILURE CONGESTIVE
     Dosage: 2 MG, DAILY
     Route: 048
  2. AMISULPRIDE [Concomitant]
     Indication: SCHIZOPHRENIA
     Dosage: 200 MG, DAILY
     Route: 048
     Dates: start: 20030326, end: 20111215
  3. RAMIPRIL [Concomitant]
     Indication: CARDIAC FAILURE CONGESTIVE
     Dosage: 1.25 MG, DAILY
     Route: 048
  4. CLOZARIL [Suspect]
     Indication: SCHIZOPHRENIA
     Dosage: 650 MG, DAILY
     Route: 048
     Dates: start: 20030326, end: 20111215

REACTIONS (27)
  - ARTERIOSCLEROSIS [None]
  - PULMONARY HYPERTENSION [None]
  - ACQUIRED DIAPHRAGMATIC EVENTRATION [None]
  - C-REACTIVE PROTEIN INCREASED [None]
  - CIRCULATORY COLLAPSE [None]
  - ATELECTASIS [None]
  - PRODUCTIVE COUGH [None]
  - DYSPNOEA [None]
  - CORONARY OSTIAL STENOSIS [None]
  - CHOLELITHIASIS [None]
  - PANCREATITIS HAEMORRHAGIC [None]
  - PLEURAL EFFUSION [None]
  - CARDIOMEGALY [None]
  - RENAL FAILURE [None]
  - INTESTINAL DILATATION [None]
  - OVARIAN ATROPHY [None]
  - CARDIAC FAILURE CONGESTIVE [None]
  - LEFT VENTRICULAR HYPERTROPHY [None]
  - ISCHAEMIA [None]
  - CARDIAC ARREST [None]
  - CYANOSIS [None]
  - OEDEMA PERIPHERAL [None]
  - VENOUS INSUFFICIENCY [None]
  - WHITE BLOOD CELL COUNT INCREASED [None]
  - OBESITY [None]
  - HYPERTENSION [None]
  - CONSTIPATION [None]
